FAERS Safety Report 11199446 (Version 2)
Quarter: 2015Q3

REPORT INFORMATION
  Report Type: Spontaneous
  Country: FR (occurrence: FR)
  Receive Date: 20150618
  Receipt Date: 20150730
  Transmission Date: 20151125
  Serious: Yes (Death, Other)
  Sender: FDA-Public Use
  Company Number: FR-ACTELION-A-CH2015-119485

PATIENT
  Age: 81 Year
  Sex: Male

DRUGS (4)
  1. LASILIX [Concomitant]
     Active Substance: FUROSEMIDE
     Indication: CARDIAC FAILURE
     Dosage: 40 MG, QD
     Route: 048
     Dates: start: 20150605
  2. ILOPROST [Concomitant]
     Active Substance: ILOPROST
     Indication: SKIN ULCER
     Dosage: UNK
     Route: 042
     Dates: start: 20150604, end: 20150605
  3. COUMADINE [Concomitant]
     Active Substance: WARFARIN SODIUM
     Indication: ATRIAL FIBRILLATION
     Dosage: 3 MG, QD
     Route: 048
  4. TRACLEER [Suspect]
     Active Substance: BOSENTAN
     Indication: SKIN ULCER
     Dosage: 62.5 MG, UNK
     Route: 048
     Dates: start: 20150430, end: 20150605

REACTIONS (5)
  - Coma [Not Recovered/Not Resolved]
  - Respiratory acidosis [Fatal]
  - Lung disorder [Fatal]
  - Acute respiratory distress syndrome [Fatal]
  - Pyrexia [Fatal]

NARRATIVE: CASE EVENT DATE: 20150604
